FAERS Safety Report 12252169 (Version 1)
Quarter: 2016Q2

REPORT INFORMATION
  Report Type: Spontaneous
  Country: US (occurrence: None)
  Receive Date: 20160408
  Receipt Date: 20160408
  Transmission Date: 20160815
  Serious: Yes (Disabling)
  Sender: FDA-Public Use
  Company Number: None

PATIENT
  Age: 67 Year
  Sex: Female
  Weight: 76.2 kg

DRUGS (10)
  1. VANCOMYCIN [Concomitant]
     Active Substance: VANCOMYCIN
  2. TYLENOL ARTHRITIS PAIN [Concomitant]
     Active Substance: ACETAMINOPHEN
  3. ALIGN [Concomitant]
     Active Substance: BIFIDOBACTERIUM LONGUM SUBSP. INFANTIS
  4. ALEVE [Concomitant]
     Active Substance: NAPROXEN SODIUM
  5. CLINDAMYCIN [Suspect]
     Active Substance: CLINDAMYCIN\CLINDAMYCIN PHOSPHATE
     Indication: PREOPERATIVE CARE
     Dates: start: 20160224, end: 20160224
  6. LEVOTHYROXIN [Concomitant]
     Active Substance: LEVOTHYROXINE
  7. CENTRUM SILVER MULTIVITAMINS [Concomitant]
  8. CORAL CALCIUM [Concomitant]
  9. FISH OIL [Concomitant]
     Active Substance: FISH OIL
  10. LACTASE [Concomitant]
     Active Substance: LACTASE

REACTIONS (3)
  - Diarrhoea [None]
  - Clostridium test positive [None]
  - Abdominal pain [None]

NARRATIVE: CASE EVENT DATE: 20160306
